FAERS Safety Report 5940272-5 (Version None)
Quarter: 2008Q4

REPORT INFORMATION
  Report Type: 
  Country: None (occurrence: None)
  Receive Date: 20081104
  Receipt Date: 20081029
  Transmission Date: 20090506
  Serious: Yes (Death)
  Sender: FDA-Public Use
  Company Number: JP-AVENTIS-200810619JP

PATIENT
  Age: 69 Year
  Sex: Male
  Weight: 73 kg

DRUGS (17)
  1. TAXOTERE [Suspect]
     Indication: PROSTATE CANCER RECURRENT
     Route: 041
     Dates: start: 20071207, end: 20071207
  2. TAXOTERE [Suspect]
     Route: 041
     Dates: start: 20071228, end: 20071228
  3. TAXOTERE [Suspect]
     Route: 041
     Dates: start: 20080118, end: 20080118
  4. ZOMETA [Concomitant]
  5. WARFARIN SODIUM [Concomitant]
  6. PREDNISOLONE [Concomitant]
     Indication: PROSTATE CANCER RECURRENT
     Route: 048
     Dates: start: 20071208
  7. MS CONTIN [Concomitant]
     Dosage: DOSE: 6 TABLETS
     Route: 048
  8. NOVAMIN                            /00013301/ [Concomitant]
     Dosage: DOSE: 1 TABLET
     Route: 048
  9. NAIXAN                             /00256201/ [Concomitant]
     Dosage: DOSE: 6 TABLETS
     Route: 048
  10. RABEPRAZOLE SODIUM [Concomitant]
     Dosage: DOSE: 1 TABLET
     Route: 048
  11. ADALAT [Concomitant]
     Dosage: DOSE: 1 TABLET
     Route: 048
  12. HARNAL [Concomitant]
     Dosage: DOSE: 1 TABLET
     Route: 048
  13. ALOSENN                            /00476901/ [Concomitant]
     Dosage: DOSE: 1 PACKAGE
     Route: 048
  14. LIVACT [Concomitant]
     Dosage: DOSE: 3 PACKAGES
     Route: 048
  15. SELBEX [Concomitant]
     Dosage: DOSE: 3 CAPSULES
     Route: 048
  16. MAGNESIUM OXIDE [Concomitant]
     Route: 048
  17. LENDORMIN [Concomitant]
     Dosage: DOSE: 1 TABLST
     Route: 048

REACTIONS (1)
  - INTERSTITIAL LUNG DISEASE [None]
